FAERS Safety Report 22324479 (Version 2)
Quarter: 2023Q2

REPORT INFORMATION
  Report Type: Report from Study
  Country: US (occurrence: US)
  Receive Date: 20230516
  Receipt Date: 20230620
  Transmission Date: 20230722
  Serious: Yes (Hospitalization, Other)
  Sender: FDA-Public Use
  Company Number: US-GILEAD-2023-0628059

PATIENT
  Age: 9 Year
  Sex: Male

DRUGS (1)
  1. AZTREONAM LYSINE [Suspect]
     Active Substance: AZTREONAM LYSINE
     Indication: Cystic fibrosis
     Dosage: 75 MG, TID, FOR 28 DAYS ON ANS 28 DAYS OFF
     Route: 055
     Dates: start: 20220614

REACTIONS (1)
  - Cystic fibrosis [Not Recovered/Not Resolved]
